FAERS Safety Report 7883962-X (Version None)
Quarter: 2011Q4

REPORT INFORMATION
  Report Type: 
  Country: None (occurrence: None)
  Receive Date: 20111102
  Receipt Date: 20111028
  Transmission Date: 20120403
  Serious: Yes (Hospitalization, Other)
  Sender: FDA-Public Use
  Company Number: JP-PFIZER INC-2008068343

PATIENT
  Age: 69 Year
  Sex: Male
  Weight: 51 kg

DRUGS (4)
  1. SUNITINIB MALATE [Suspect]
     Dosage: 37.5 MG, 1X/DAY
     Dates: start: 20080908, end: 20080925
  2. SUNITINIB MALATE [Suspect]
     Dosage: 25 MG, 1X/DAY
     Dates: start: 20090629, end: 20091123
  3. FAMOTIDINE [Concomitant]
     Route: 048
  4. SUNITINIB MALATE [Suspect]
     Indication: GASTROINTESTINAL STROMAL TUMOUR
     Dosage: 50 MG, 1X/DAY
     Route: 048
     Dates: start: 20080728

REACTIONS (4)
  - PLATELET COUNT DECREASED [None]
  - THROMBOCYTOPENIA [None]
  - LOSS OF CONSCIOUSNESS [None]
  - NEUTROPENIA [None]
